FAERS Safety Report 11443598 (Version 1)
Quarter: 2015Q3

REPORT INFORMATION
  Report Type: Spontaneous
  Country: CA (occurrence: CA)
  Receive Date: 20150901
  Receipt Date: 20150901
  Transmission Date: 20151125
  Serious: Yes (Other)
  Sender: FDA-Public Use
  Company Number: CA-TEVA-590268ACC

PATIENT
  Sex: Female
  Weight: 48.12 kg

DRUGS (4)
  1. VENLAFAXINE XR [Suspect]
     Active Substance: VENLAFAXINE HYDROCHLORIDE
     Dosage: 300 MILLIGRAM DAILY;
     Route: 048
  2. CO IRBESARTAN (IRBESARTAN) [Interacting]
     Active Substance: IRBESARTAN
     Indication: HYPERTENSION
     Dosage: 150 MILLIGRAM DAILY;
     Route: 048
  3. CLONAZEPAM-R [Concomitant]
  4. TRAZODONE [Concomitant]
     Active Substance: TRAZODONE HYDROCHLORIDE

REACTIONS (4)
  - Drug interaction [Recovered/Resolved]
  - Mood altered [Recovered/Resolved]
  - Antidepressant drug level decreased [Recovered/Resolved]
  - Product substitution issue [Recovered/Resolved]
